FAERS Safety Report 9640561 (Version 1)
Quarter: 2013Q4

REPORT INFORMATION
  Report Type: Spontaneous
  Country: US (occurrence: US)
  Receive Date: 20131023
  Receipt Date: 20131023
  Transmission Date: 20140711
  Serious: No
  Sender: FDA-Public Use
  Company Number: US-ABBVIE-13P-163-1094046-00

PATIENT
  Sex: Female
  Weight: 75.36 kg

DRUGS (4)
  1. LUPRON DEPOT [Suspect]
     Indication: ABDOMINAL PAIN
     Dosage: A TOTAL OF 4 INJECTIONS
     Dates: start: 201210, end: 201302
  2. LUPRON DEPOT [Suspect]
     Indication: VAGINAL DISORDER
  3. LUPRON DEPOT [Suspect]
     Indication: PELVIC PAIN
  4. DEPOPROVERA [Concomitant]
     Indication: PRODUCT USED FOR UNKNOWN INDICATION

REACTIONS (5)
  - Gait disturbance [Not Recovered/Not Resolved]
  - Pain [Not Recovered/Not Resolved]
  - Pain [Not Recovered/Not Resolved]
  - Local swelling [Not Recovered/Not Resolved]
  - Motor dysfunction [Not Recovered/Not Resolved]
